FAERS Safety Report 5928783-X (Version None)
Quarter: 2008Q4

REPORT INFORMATION
  Report Type: 
  Country: None (occurrence: None)
  Receive Date: 20081021
  Receipt Date: 20081006
  Transmission Date: 20090506
  Serious: Yes (Other)
  Sender: FDA-Public Use
  Company Number: 2008S1009898

PATIENT
  Age: 13 Year
  Sex: Male

DRUGS (5)
  1. SODIUM PHOSPHATE DIBASIC/SODIUM PHOSPHATE (SODIUM PHOSPHATE DIABASIC/S [Suspect]
     Indication: CONSTIPATION
     Dosage: 125 ML, X1; RTL
     Route: 054
  2. SODIUM PHOSPHATE DIBASIC/SODIUM PHOSPHATE (SODIUM PHOSPHATE DIABASIC/S [Suspect]
     Indication: DRUG USE FOR UNKNOWN INDICATION
     Dosage: 125 ML,X1; RTL
     Route: 054
  3. PHENOBARBITAL TAB [Concomitant]
  4. ZONISAMIDE [Concomitant]
  5. CARBAMAZEPINE [Concomitant]

REACTIONS (11)
  - BLOOD OSMOLARITY INCREASED [None]
  - BLOOD PRESSURE DECREASED [None]
  - BLOOD SODIUM INCREASED [None]
  - DEHYDRATION [None]
  - DEPRESSED LEVEL OF CONSCIOUSNESS [None]
  - HEART RATE INCREASED [None]
  - HYPERPHOSPHATAEMIA [None]
  - HYPOCALCAEMIA [None]
  - OXYGEN SATURATION DECREASED [None]
  - RENAL FAILURE ACUTE [None]
  - RESPIRATORY RATE INCREASED [None]
